FAERS Safety Report 10413618 (Version 3)
Quarter: 2014Q3

REPORT INFORMATION
  Report Type: Spontaneous
  Country: US (occurrence: US)
  Receive Date: 20140827
  Receipt Date: 20140918
  Transmission Date: 20150326
  Serious: Yes (Hospitalization, Other)
  Sender: FDA-Public Use
  Company Number: US-009507513-2012SP032007

PATIENT
  Sex: Female
  Weight: 71 kg

DRUGS (1)
  1. NUVARING [Suspect]
     Active Substance: ETHINYL ESTRADIOL\ETONOGESTREL
     Indication: PRODUCT USED FOR UNKNOWN INDICATION
     Route: 067
     Dates: start: 201002, end: 201006

REACTIONS (2)
  - Pulmonary embolism [Unknown]
  - Embolism venous [Unknown]

NARRATIVE: CASE EVENT DATE: 20100602
